FAERS Safety Report 20179755 (Version 2)
Quarter: 2022Q1

REPORT INFORMATION
  Report Type: Spontaneous
  Country: JP (occurrence: JP)
  Receive Date: 20211214
  Receipt Date: 20220117
  Transmission Date: 20220424
  Serious: Yes (Other)
  Sender: FDA-Public Use
  Company Number: JP-NOVARTISPH-NVSJ2021JP016878

PATIENT
  Age: 69 Year
  Sex: Male

DRUGS (2)
  1. BEOVU [Suspect]
     Active Substance: BROLUCIZUMAB-DBLL
     Indication: Age-related macular degeneration
     Dosage: 6 MG
     Route: 031
     Dates: start: 20210823, end: 20210823
  2. BEOVU [Suspect]
     Active Substance: BROLUCIZUMAB-DBLL
     Dosage: 6 MG
     Route: 031
     Dates: start: 20210927, end: 20210927

REACTIONS (3)
  - Uveitis [Recovered/Resolved]
  - Vitreous opacities [Recovered/Resolved]
  - Eye inflammation [Recovering/Resolving]

NARRATIVE: CASE EVENT DATE: 20211006
